FAERS Safety Report 16543725 (Version 1)
Quarter: 2019Q3

REPORT INFORMATION
  Report Type: Spontaneous
  Country: US (occurrence: US)
  Receive Date: 20190528
  Receipt Date: 20190528
  Transmission Date: 20191004
  Serious: No
  Sender: FDA-Public Use
  Company Number: None

PATIENT
  Age: 70 Year
  Sex: Female

DRUGS (1)
  1. SIMPONI [Suspect]
     Active Substance: GOLIMUMAB
     Route: 058
     Dates: start: 20140101

REACTIONS (3)
  - Upper-airway cough syndrome [None]
  - Therapy cessation [None]
  - Viral infection [None]

NARRATIVE: CASE EVENT DATE: 20190527
